FAERS Safety Report 8220351-2 (Version None)
Quarter: 2012Q1

REPORT INFORMATION
  Report Type: 
  Country: None (occurrence: None)
  Receive Date: 20120316
  Receipt Date: 20120306
  Transmission Date: 20120608
  Serious: Yes (Hospitalization)
  Sender: FDA-Public Use
  Company Number: AXC-2012-000093

PATIENT
  Age: 77 Year
  Sex: Female

DRUGS (25)
  1. ZOCOR (SIMVASTATIN) UNKNOWN UNK TO UNK [Concomitant]
  2. MIACALCIN (CALCITONIN, SALMON) UNK TO UNK [Concomitant]
  3. MAALOX /00082501/ (ALUMINIUM HYDROXIDE, MAGNESIUM HYDROXIDE) UNK TO UN [Concomitant]
  4. OS-CAL /00108001/ (CALCIUM CARBONATE) UNKNOWN UNK TO UNK [Concomitant]
  5. CARAFATE [Suspect]
     Indication: PRODUCT USED FOR UNKNOWN INDICATION
     Dates: start: 20070101
  6. PACLITAXEL [Suspect]
     Indication: BREAST CANCER
     Dosage: 416 MG,
     Dates: start: 20060829
  7. PACLITAXEL [Suspect]
     Indication: BREAST CANCER
     Dosage: 416 MG,
     Dates: start: 20070108
  8. ZOMETA (ZOLEDRONIC ACID) UNK TO UNK [Concomitant]
  9. MAGNESIUM (MAGNESIUM) UNKNOWN UNK TO UNK [Concomitant]
  10. GLYCERIN /00200601/ (GLYCEROL) UNKNOWN UNK TO UNK [Concomitant]
  11. MONISTAT (MICONAZOLE NITRATE) UNKNOWN UNK TO UNK [Concomitant]
  12. AVASTIN [Suspect]
     Dates: start: 20060829
  13. TRIPLE-MIX MOUTH WASH UNKNOWN UNK TO UNK [Concomitant]
  14. ESOMEPRAZOLE MAGNESIUM (ESOMEPRAZOLE MAGNESIUM) UNKNOWN UNK TO UNK [Concomitant]
  15. DIPHENHYDRAMINE HYDROCHLORIDE (DIPHENHYDRAMINE HYDROCHLORIDE) UNKNOWN [Concomitant]
  16. SENOKOT /00142201/ (SENNA ALEXANDRINA) UNKNOWN UNK TO UNK [Concomitant]
  17. ALOXI (PALONOSETRON HYDROCHLORIDE) UNK TO UNK [Concomitant]
  18. ABARELIX (ABARELIX) UNKNOWN [Suspect]
     Indication: PRODUCT USED FOR UNKNOWN INDICATION
  19. AVASTIN [Suspect]
     Indication: BREAST CANCER METASTATIC
     Dosage: Q 3 WEEKS, INTRAVENOUS
     Route: 042
     Dates: start: 20060829
  20. AVASTIN [Suspect]
     Indication: BREAST CANCER METASTATIC
     Dosage: Q 3 WEEKS, INTRAVENOUS
     Route: 042
     Dates: start: 20070108
  21. DEXAMETHASONE (DEXAMETHASONE) UNKNOWN UNK TO UNK [Concomitant]
  22. ASTELIN /00884002/ (AZELASTINE HYDROCHLORIDE) UNK TO UNK [Concomitant]
  23. COMPAZINE /00013302/ (PROCHLORPERAZINE EDISYLATE) UNK TO UNK [Concomitant]
  24. PERCOCET /00867901/ (OXYCODONE HYDROCHLORIDE, PARACETAMOL) UNK TO UNK [Concomitant]
  25. PHENERGAN /00033001/ (PROMETHAZINE) UNK TO UNK [Concomitant]

REACTIONS (9)
  - NAUSEA [None]
  - DUODENAL ULCER [None]
  - VOMITING [None]
  - BLOOD POTASSIUM DECREASED [None]
  - MELAENA [None]
  - HAEMATEMESIS [None]
  - COAGULOPATHY [None]
  - GASTRITIS [None]
  - OESOPHAGITIS [None]
